FAERS Safety Report 10035929 (Version 2)
Quarter: 2014Q1

REPORT INFORMATION
  Report Type: Report from Study
  Country: US (occurrence: US)
  Receive Date: 20140325
  Receipt Date: 20140325
  Transmission Date: 20141002
  Serious: Yes (Hospitalization, Other)
  Sender: FDA-Public Use
  Company Number: US-TAKEDA-2013TUS000897

PATIENT
  Age: 76 Year
  Sex: Male
  Weight: 115.5 kg

DRUGS (71)
  1. BLINDED ALLOPURINOL [Suspect]
     Indication: HYPERURICAEMIA
     Dosage: UNK UNK, QD
     Route: 048
     Dates: start: 20120919, end: 20130713
  2. BLINDED FEBUXOSTAT [Suspect]
     Indication: HYPERURICAEMIA
     Dosage: UNK UNK, QD
     Route: 048
     Dates: start: 20120919, end: 20130713
  3. BLINDED ALLOPURINOL [Suspect]
     Dosage: UNK UNK, QD
     Route: 048
     Dates: start: 20130716, end: 20130717
  4. BLINDED FEBUXOSTAT [Suspect]
     Dosage: UNK UNK, QD
     Route: 048
     Dates: start: 20130716, end: 20130717
  5. BLINDED ALLOPURINOL [Suspect]
     Dosage: UNK UNK, QD
     Route: 048
     Dates: start: 20130726, end: 20130809
  6. BLINDED FEBUXOSTAT [Suspect]
     Dosage: UNK UNK, QD
     Route: 048
     Dates: start: 20130726, end: 20130809
  7. BLINDED ALLOPURINOL [Suspect]
     Dosage: UNK UNK, QD
     Route: 048
     Dates: start: 20130913
  8. BLINDED FEBUXOSTAT [Suspect]
     Dosage: UNK UNK, QD
     Route: 048
     Dates: start: 20130913
  9. AMIODARONE HCL [Concomitant]
     Indication: VENTRICULAR TACHYCARDIA
     Dosage: 400 MG, BID
     Route: 048
     Dates: start: 2011
  10. AMIODARONE HCL [Concomitant]
     Indication: CARDIAC FAILURE CONGESTIVE
     Dosage: 100 MG, QHS
     Route: 048
     Dates: start: 201305
  11. GABAPENTIN [Concomitant]
     Indication: NEUROPATHY PERIPHERAL
     Dosage: 300-700 MG, QHS PRN
     Route: 048
     Dates: start: 2010
  12. GABAPENTIN [Concomitant]
     Dosage: 300 MG, BID
     Route: 048
     Dates: start: 20130722, end: 20130725
  13. FUROSEMIDE [Concomitant]
     Indication: CARDIAC FAILURE CONGESTIVE
     Dosage: 20 MG, BID
     Route: 042
     Dates: start: 20130713, end: 20130714
  14. FUROSEMIDE [Concomitant]
     Indication: CARDIAC FAILURE CONGESTIVE
     Dosage: 20 MG, X1
     Route: 042
     Dates: start: 20130714, end: 20130714
  15. FUROSEMIDE [Concomitant]
     Indication: CARDIAC FAILURE ACUTE
     Dosage: 40 MG, BID
     Route: 042
     Dates: start: 20130714, end: 20130715
  16. FUROSEMIDE [Concomitant]
     Dosage: 40 MG, BID
     Route: 048
     Dates: start: 20130725, end: 20130811
  17. FUROSEMIDE [Concomitant]
     Dosage: 40 MG, BID
     Route: 048
     Dates: start: 20130725
  18. SINGULAIR [Concomitant]
     Indication: SEASONAL ALLERGY
     Dosage: 10 MG, QD
     Route: 048
     Dates: start: 200407
  19. COREG [Concomitant]
     Indication: HYPOTENSION
     Dosage: 6.25 MG, BID
     Route: 048
     Dates: start: 20121114
  20. ATACAND [Concomitant]
     Indication: HYPERTENSION
     Dosage: 16 MG, DAILY
     Route: 048
     Dates: start: 20121114
  21. ATACAND [Concomitant]
     Indication: CARDIAC FAILURE CONGESTIVE
     Dosage: 8 MG, DAILY
     Route: 048
     Dates: start: 201306
  22. ATACAND [Concomitant]
     Indication: CARDIAC FAILURE CONGESTIVE
     Dosage: 8 MG, DAILY
     Route: 048
     Dates: start: 20130714, end: 20130725
  23. ATACAND [Concomitant]
     Dosage: 8 MG, X1
     Route: 048
     Dates: start: 20130714, end: 20130714
  24. FISH OIL [Concomitant]
     Indication: CORONARY ARTERY DISEASE
     Dosage: 1 PILL, QD
     Route: 048
     Dates: start: 2011
  25. OXYGEN [Concomitant]
     Indication: CHRONIC OBSTRUCTIVE PULMONARY DISEASE
     Dosage: 3 L, PRN
     Route: 045
     Dates: start: 2010
  26. FLOVENT HFA [Concomitant]
     Indication: CHRONIC OBSTRUCTIVE PULMONARY DISEASE
     Dosage: 110 ?G, 2 PUFF BID
     Route: 050
     Dates: start: 2012
  27. LEXAPRO [Concomitant]
     Indication: DEPRESSION
     Dosage: 10 MG, QD
     Route: 048
     Dates: start: 20130530
  28. ISOSORBIDE [Concomitant]
     Indication: CARDIAC FAILURE CONGESTIVE
     Dosage: 15 MG, BID
     Route: 048
     Dates: start: 20130713
  29. ASCORBIC ACID [Concomitant]
     Indication: PROPHYLAXIS
     Dosage: 1000 MG, DAILY
     Route: 048
     Dates: start: 201305
  30. KCL [Concomitant]
     Indication: ELECTROLYTE IMBALANCE
     Dosage: 20 MEQ, BID
     Route: 048
     Dates: start: 201305
  31. TEFLARO [Concomitant]
     Indication: PNEUMONIA STAPHYLOCOCCAL
     Dosage: 400 MG, EVERY 12 HRS THRU 08-19-13
     Route: 042
     Dates: start: 20130725
  32. FOLIC ACID [Concomitant]
     Indication: PROPHYLAXIS
     Dosage: 1 MG, DAILY
     Route: 048
     Dates: start: 201305
  33. B12 COMPLEX [Concomitant]
     Indication: VITAMIN SUPPLEMENTATION
     Dosage: 1 PILL, DAILY
     Route: 048
     Dates: start: 201306
  34. B-COMPLEX                          /00003501/ [Concomitant]
     Indication: VITAMIN SUPPLEMENTATION
     Dosage: 1 PILL, DAILY
     Route: 048
     Dates: start: 201306
  35. SALINE FLUSH [Concomitant]
     Indication: CARDIAC FAILURE ACUTE
     Dosage: 10 ML, EVERY 8 HOURS
     Route: 042
     Dates: start: 20130713, end: 20130715
  36. ASPIRIN [Concomitant]
     Indication: CORONARY ARTERY DISEASE
     Dosage: 81 MG, DAILY
     Route: 048
     Dates: start: 20130714, end: 20130715
  37. ALLOPURINOL [Concomitant]
     Indication: GOUT
     Dosage: 300 MG, HS
     Route: 048
     Dates: start: 20130713, end: 20130715
  38. ALLOPURINOL [Concomitant]
     Dosage: 300 MG, EVERY HS
     Route: 048
     Dates: start: 20130717, end: 20130724
  39. ZOLPIDEM [Concomitant]
     Indication: INSOMNIA
     Dosage: 5 MG, PRN/HS
     Route: 048
     Dates: start: 20130714, end: 201307
  40. ZOLPIDEM [Concomitant]
     Indication: SLEEP DISORDER
     Dosage: 5 MG, EVERY HS PRN
     Route: 048
     Dates: start: 20130717, end: 20130723
  41. AMIODARONE [Concomitant]
     Indication: CARDIAC FAILURE CONGESTIVE
     Dosage: 100 MG, QHS
     Route: 048
     Dates: start: 201305
  42. CEFTAROLINE [Concomitant]
     Indication: PNEUMONIA STAPHYLOCOCCAL
     Dosage: 600 MG, EVERY 12 HRS
     Route: 042
     Dates: start: 20130720, end: 20130722
  43. CEFTAROLINE [Concomitant]
     Dosage: 400 MG, EVERY 12 HRS
     Route: 042
     Dates: start: 20130723, end: 20130725
  44. SODIUM CHLORIDE 0.9% [Concomitant]
     Indication: PNEUMONIA STAPHYLOCOCCAL
     Dosage: 100 ML, EVERY 12 HRS
     Route: 042
     Dates: start: 20130720, end: 20130725
  45. SODIUM CHLORIDE 0.9% [Concomitant]
     Dosage: 50 ML, X1
     Route: 042
     Dates: start: 20130718, end: 20130718
  46. SODIUM CHLORIDE 0.9% [Concomitant]
     Dosage: 250 ML, X1
     Route: 042
     Dates: start: 20130717, end: 20130717
  47. DAPTOMYCIN [Concomitant]
     Indication: PNEUMONIA STAPHYLOCOCCAL
     Dosage: 700 MG, X1
     Route: 042
     Dates: start: 20130718, end: 20130718
  48. GUAIFENESIN [Concomitant]
     Indication: PNEUMONIA STAPHYLOCOCCAL
     Dosage: 1200 MG, X1
     Route: 048
     Dates: start: 20130723, end: 20130723
  49. ALBUTEROL 0.5% [Concomitant]
     Indication: PNEUMONIA STAPHYLOCOCCAL
     Dosage: 2.5 MG, EVERY 4 HRS
     Route: 050
     Dates: start: 20130717, end: 20130719
  50. ALBUTEROL 0.5% [Concomitant]
     Dosage: 2.5 MG, EVERY 6 HRS WHILE AWAKE
     Route: 050
     Dates: start: 20130719, end: 20130722
  51. BUMETANIDE [Concomitant]
     Indication: CARDIAC FAILURE
     Dosage: 2 MG, BID
     Route: 048
     Dates: start: 20130718, end: 20130719
  52. BUMETANIDE [Concomitant]
     Dosage: 2 MG, TID
     Route: 048
     Dates: start: 20130719, end: 20130721
  53. BUMETANIDE [Concomitant]
     Dosage: 2 MG, BID
     Route: 048
     Dates: start: 20130721, end: 20130724
  54. BUMETANIDE [Concomitant]
     Dosage: 2 MG, QD
     Route: 048
     Dates: start: 20130725, end: 20130725
  55. MOXIFLOXACIN [Concomitant]
     Indication: PNEUMONIA STAPHYLOCOCCAL
     Dosage: 400 MG, X1
     Route: 042
     Dates: start: 20130717, end: 20130717
  56. ZOSYN [Concomitant]
     Indication: PNEUMONIA STAPHYLOCOCCAL
     Dosage: 3.375 G, EVERY 8 HRS
     Route: 042
     Dates: start: 20130717, end: 20130720
  57. DEXTROSE IN WATER (DSW) [Concomitant]
     Indication: PNEUMONIA STAPHYLOCOCCAL
     Dosage: 50 ML, EVERY 8 HRS
     Route: 042
     Dates: start: 20130717, end: 20130720
  58. DEXTROSE IN WATER (DSW) [Concomitant]
     Dosage: 300 ML, X1
     Route: 042
     Dates: start: 20130717, end: 20130717
  59. DEXTROSE IN WATER (DSW) [Concomitant]
     Dosage: 300 ML, EVERY 12 HRS
     Route: 042
     Dates: start: 20130719, end: 20130720
  60. POTASSIUM CHLORIDE [Concomitant]
     Indication: CARDIAC FAILURE
     Dosage: 40 MEQ, X1
     Route: 048
     Dates: start: 20130722, end: 20130722
  61. POTASSIUM CHLORIDE [Concomitant]
     Dosage: 40 MEQ, X1
     Route: 048
     Dates: start: 20130725, end: 20130725
  62. SODIUM CHLORIDE 0.9 % FLUSH [Concomitant]
     Indication: PNEUMONIA STAPHYLOCOCCAL
     Dosage: 10 ML, EVERY 12 HRS
     Route: 042
     Dates: start: 20130717, end: 20130725
  63. HEPARIN [Concomitant]
     Indication: THROMBOSIS PROPHYLAXIS
     Dosage: 5000 UNITS, EVERY 8 HRS
     Route: 058
     Dates: start: 20130717, end: 20130725
  64. IPRATROPIUM 0.02% [Concomitant]
     Indication: PNEUMONIA STAPHYLOCOCCAL
     Dosage: 0.5 MG, EVERY 4 HRS
     Route: 050
     Dates: start: 20130717, end: 20130719
  65. IPRATROPIUM 0.02% [Concomitant]
     Dosage: 0.5 MG, EVERY 6 HRS WHILE AWAKE
     Route: 050
     Dates: start: 20130719, end: 20130722
  66. LINEZOLID [Concomitant]
     Indication: PNEUMONIA STAPHYLOCOCCAL
     Dosage: 600 MG, X1
     Route: 042
     Dates: start: 20130717, end: 20130717
  67. LINEZOLID [Concomitant]
     Dosage: 600 MG, EVERY 12 HRS
     Route: 042
     Dates: start: 20130719, end: 20130720
  68. METHYLPREDNISOLONE [Concomitant]
     Indication: PNEUMONIA STAPHYLOCOCCAL
     Dosage: 125 MG, X1
     Route: 042
     Dates: start: 20130717, end: 20130717
  69. DIPHENHYDRAMINE [Concomitant]
     Indication: SLEEP DISORDER
     Dosage: 12.5 MG, X1
     Route: 048
     Dates: start: 20130718, end: 20130718
  70. HYDROCODONE [Concomitant]
     Indication: PNEUMONIA STAPHYLOCOCCAL
     Dosage: 5 MG, 1 TABLET EVERY 4 HRS PRN
     Route: 048
     Dates: start: 20130719, end: 20130721
  71. ACETAMINOPHEN [Concomitant]
     Indication: PNEUMONIA STAPHYLOCOCCAL
     Dosage: 325 MG, 1 EVERY 4 HRS PRN
     Route: 048
     Dates: start: 20130719, end: 20130721

REACTIONS (7)
  - Cardiac failure congestive [Recovered/Resolved]
  - Pneumonia staphylococcal [Recovered/Resolved]
  - Bacteraemia [Recovered/Resolved]
  - Cardiac failure [Recovered/Resolved]
  - Asthenia [Recovered/Resolved]
  - Cardiac failure [Recovering/Resolving]
  - Fall [Recovered/Resolved]
